FAERS Safety Report 5112922-7 (Version None)
Quarter: 2006Q3

REPORT INFORMATION
  Report Type: 
  Country: None (occurrence: None)
  Receive Date: 20060921
  Receipt Date: 20060921
  Transmission Date: 20061208
  Serious: Yes (Hospitalization)
  Sender: FDA-Public Use
  Company Number: None

PATIENT
  Age: 42 Year
  Sex: Male
  Weight: 70 kg

DRUGS (1)
  1. LISINOPRIL [Suspect]
     Indication: HYPERTENSION
     Dosage: ONCE DAILY-BY MOUTH
     Dates: start: 20040101, end: 20060101

REACTIONS (4)
  - DYSPHAGIA [None]
  - FACE OEDEMA [None]
  - SWELLING FACE [None]
  - THERAPY NON-RESPONDER [None]
